FAERS Safety Report 24030384 (Version 1)
Quarter: 2024Q2

REPORT INFORMATION
  Report Type: Spontaneous
  Country: US (occurrence: None)
  Receive Date: 20240628
  Receipt Date: 20240628
  Transmission Date: 20240715
  Serious: Yes (Hospitalization)
  Sender: FDA-Public Use
  Company Number: None

PATIENT
  Sex: Female

DRUGS (2)
  1. TERIPARATIDE ACETATE [Suspect]
     Active Substance: TERIPARATIDE ACETATE
     Indication: Senile osteoporosis
     Dosage: 20MCG DAILY DW??PATIENT HAS BEEN ON TERIPARATIDE FOR 4 MONTHS NOW.06/06/2024
  2. TERIPARATIDE PEN (PRASCO) [Concomitant]

REACTIONS (3)
  - Angina pectoris [None]
  - Thrombosis [None]
  - Sternal fracture [None]
